FAERS Safety Report 19238876 (Version 1)
Quarter: 2021Q2

REPORT INFORMATION
  Report Type: Spontaneous
  Country: US (occurrence: US)
  Receive Date: 20210510
  Receipt Date: 20210510
  Transmission Date: 20210717
  Serious: Yes (Other)
  Sender: FDA-Public Use
  Company Number: US-OTSUKA-2021_015462

PATIENT
  Sex: Female

DRUGS (1)
  1. SAMSCA [Suspect]
     Active Substance: TOLVAPTAN
     Indication: ANTIDIURETIC HORMONE ABNORMALITY
     Dosage: 15 MG, QD
     Route: 048

REACTIONS (2)
  - Brain neoplasm malignant [Unknown]
  - Product use in unapproved indication [Unknown]
